FAERS Safety Report 5964535-2 (Version None)
Quarter: 2008Q4

REPORT INFORMATION
  Report Type: 
  Country: None (occurrence: None)
  Receive Date: 20081122
  Receipt Date: 20081122
  Transmission Date: 20090506
  Serious: Yes (Death)
  Sender: FDA-Public Use
  Company Number: None

PATIENT
  Age: 48 Year
  Sex: Male
  Weight: 83.9154 kg

DRUGS (1)
  1. PRIALT [Suspect]
     Dosage: SEE ATTACHED FORM LETTER

REACTIONS (4)
  - COMPLETED SUICIDE [None]
  - CONFUSIONAL STATE [None]
  - PAIN [None]
  - PYREXIA [None]
